FAERS Safety Report 11306438 (Version 2)
Quarter: 2015Q3

REPORT INFORMATION
  Report Type: Spontaneous
  Country: US (occurrence: US)
  Receive Date: 20150723
  Receipt Date: 20150904
  Transmission Date: 20151125
  Serious: No
  Sender: FDA-Public Use
  Company Number: US-PFIZER INC-2015241508

PATIENT
  Age: 61 Year
  Sex: Female

DRUGS (1)
  1. LYRICA [Suspect]
     Active Substance: PREGABALIN
     Dosage: 150 MG, 3X/DAY

REACTIONS (9)
  - Impaired work ability [Recovered/Resolved]
  - Tongue disorder [Recovered/Resolved]
  - Oropharyngeal discomfort [Recovered/Resolved]
  - Weight increased [Recovered/Resolved]
  - Feeling abnormal [Recovered/Resolved]
  - Mutism [Recovered/Resolved]
  - Dyspnoea [Recovered/Resolved]
  - Dysgeusia [Recovered/Resolved]
  - Dyslexia [Recovered/Resolved]
